FAERS Safety Report 7721199-5 (Version None)
Quarter: 2011Q3

REPORT INFORMATION
  Report Type: 
  Country: None (occurrence: None)
  Receive Date: 20110825
  Receipt Date: 20110815
  Transmission Date: 20111222
  Serious: Yes (Hospitalization)
  Sender: FDA-Public Use
  Company Number: 15716954

PATIENT
  Age: 21 Year
  Sex: Female

DRUGS (4)
  1. APIXABAN [Suspect]
     Indication: EMBOLISM
     Dosage: 1 DOSAGE FORM 1 DAY ORAL
     Route: 048
     Dates: start: 20110125
  2. WARFARIN SODIUM [Suspect]
     Indication: EMBOLISM
     Dosage: 1 DOSAGE FORM 1 DAY ORAL
     Route: 048
     Dates: start: 20110125
  3. ENOXAPARIN SODIUM [Suspect]
     Dosage: 1 DOSAGE FORM SC
     Route: 058
     Dates: start: 20110125
  4. PLACEBO [Suspect]
     Indication: EMBOLISM
     Dates: start: 20110125

REACTIONS (1)
  - UTERINE HAEMORRHAGE [None]
